FAERS Safety Report 11220254 (Version 2)
Quarter: 2015Q3

REPORT INFORMATION
  Report Type: Report from Study
  Country: BR (occurrence: BR)
  Receive Date: 20150625
  Receipt Date: 20150727
  Transmission Date: 20151125
  Serious: Yes (Hospitalization)
  Sender: FDA-Public Use
  Company Number: PHHY2015BR071817

PATIENT
  Sex: Female
  Weight: 59 kg

DRUGS (3)
  1. VALSARTAN. [Suspect]
     Active Substance: VALSARTAN
     Indication: BLOOD PRESSURE INCREASED
     Dosage: 2 DF (80 MG IN THE MORNING)
     Route: 065
  2. DIOVAN [Suspect]
     Active Substance: VALSARTAN
     Indication: BLOOD PRESSURE INCREASED
     Dosage: 2 DF, (80 MG IN THE MORNING), QD
     Route: 048
  3. SEROQUEL [Concomitant]
     Active Substance: QUETIAPINE FUMARATE
     Indication: INSOMNIA
     Dosage: 1 DF, QD
     Route: 048
     Dates: start: 201505

REACTIONS (4)
  - Weight decreased [Recovered/Resolved]
  - Delirium [Recovered/Resolved]
  - Gait disturbance [Recovering/Resolving]
  - Pneumonia [Recovered/Resolved]
